FAERS Safety Report 7326165-X (Version None)
Quarter: 2011Q1

REPORT INFORMATION
  Report Type: 
  Country: None (occurrence: None)
  Receive Date: 20110302
  Receipt Date: 20110221
  Transmission Date: 20110831
  Serious: Yes (Other)
  Sender: FDA-Public Use
  Company Number: GB-JNJFOC-20110207736

PATIENT
  Sex: Male

DRUGS (6)
  1. GENERAL ANAESTHETIC [Concomitant]
     Indication: DRUG EXPOSURE DURING PREGNANCY
     Route: 064
  2. SPORANOX [Suspect]
     Indication: DRUG EXPOSURE DURING PREGNANCY
     Route: 064
  3. MORPHINE [Concomitant]
     Indication: DRUG EXPOSURE DURING PREGNANCY
     Route: 064
  4. PETHIDINE [Concomitant]
     Indication: DRUG EXPOSURE DURING PREGNANCY
     Route: 064
  5. LEVONELLE [Concomitant]
     Indication: DRUG EXPOSURE DURING PREGNANCY
     Route: 064
  6. ENTONOX [Concomitant]
     Indication: DRUG EXPOSURE DURING PREGNANCY
     Route: 064

REACTIONS (1)
  - FOETAL DISTRESS SYNDROME [None]
